FAERS Safety Report 9549656 (Version 1)
Quarter: 2013Q3

REPORT INFORMATION
  Report Type: Spontaneous
  Country: US (occurrence: None)
  Receive Date: 20130719
  Receipt Date: 20130719
  Transmission Date: 20140515
  Serious: Yes (Hospitalization)
  Sender: FDA-Public Use
  Company Number: 2012BAX021949

PATIENT
  Age: 65 Year
  Sex: Female
  Weight: 63.7 kg

DRUGS (1)
  1. CYTOXAN [Suspect]
     Indication: PLASMA CELL MYELOMA
     Dosage: 3 GM/M2 (ONE TIME), INTRAVENOUS
     Route: 042
     Dates: start: 20120614, end: 20120614

REACTIONS (1)
  - Febrile neutropenia [None]
